FAERS Safety Report 10248710 (Version 1)
Quarter: 2014Q2

REPORT INFORMATION
  Report Type: Spontaneous
  Country: US (occurrence: None)
  Receive Date: 20140617
  Receipt Date: 20140617
  Transmission Date: 20141212
  Serious: No
  Sender: FDA-Public Use
  Company Number: None

PATIENT
  Sex: Female

DRUGS (1)
  1. CARBAMAZEPINE [Suspect]
     Indication: BIPOLAR I DISORDER
     Dosage: 600MG/800MG ORAL
     Route: 048
     Dates: start: 201102, end: 201108

REACTIONS (3)
  - Vision blurred [None]
  - Product substitution issue [None]
  - Therapeutic response changed [None]
